FAERS Safety Report 23867371 (Version 1)
Quarter: 2024Q2

REPORT INFORMATION
  Report Type: Spontaneous
  Country: US (occurrence: US)
  Receive Date: 20240517
  Receipt Date: 20240517
  Transmission Date: 20240716
  Serious: No
  Sender: FDA-Public Use
  Company Number: US-002147023-NVSC2024US103342

PATIENT
  Age: 44 Year
  Sex: Female
  Weight: 57.15 kg

DRUGS (2)
  1. TAFINLAR [Suspect]
     Active Substance: DABRAFENIB MESYLATE
     Indication: Skin cancer
     Dosage: 150 MG, Q12H (BY MOUTH)
     Route: 048
     Dates: start: 20240311
  2. MEKINIST [Suspect]
     Active Substance: TRAMETINIB DIMETHYL SULFOXIDE
     Indication: Skin cancer
     Dosage: 1 DOSAGE FORM, QD (BY MOUTH)
     Route: 048
     Dates: start: 20240311

REACTIONS (2)
  - Headache [Unknown]
  - Pyrexia [Unknown]
